FAERS Safety Report 9491854 (Version 1)
Quarter: 2013Q3

REPORT INFORMATION
  Report Type: Not Available
  Country: US (occurrence: US)
  Receive Date: 20130919
  Receipt Date: 20130919
  Transmission Date: 20140515
  Serious: No
  Sender: FDA-Public Use
  Company Number: US-LUNDBECK-DKLU1083740

PATIENT
  Sex: Female

DRUGS (1)
  1. SABRIL (FOR ORAL SOLUTION) [Suspect]
     Indication: INFANTILE SPASMS

REACTIONS (2)
  - Vomiting [Unknown]
  - Insomnia [Unknown]
